FAERS Safety Report 4964267-3 (Version None)
Quarter: 2006Q1

REPORT INFORMATION
  Report Type: 
  Country: None (occurrence: None)
  Receive Date: 20060331
  Receipt Date: 20060322
  Transmission Date: 20060701
  Serious: Yes (Other)
  Sender: FDA-Public Use
  Company Number: 2006040400

PATIENT
  Age: 32 Year
  Sex: Male
  Weight: 115.6672 kg

DRUGS (1)
  1. DOXIDAN (CASANTHRANOL, DOCUSATE SODIUM) [Suspect]
     Indication: HEADACHE
     Dosage: 15 LIQUI-GELS AT ONE TIME, ORAL
     Route: 048
     Dates: start: 20060321, end: 20060321

REACTIONS (2)
  - DIARRHOEA [None]
  - SELF-MEDICATION [None]
